FAERS Safety Report 7157053-X (Version None)
Quarter: 2010Q4

REPORT INFORMATION
  Report Type: 
  Country: None (occurrence: None)
  Receive Date: 20101214
  Receipt Date: 20100107
  Transmission Date: 20110411
  Serious: No
  Sender: FDA-Public Use
  Company Number: US-ASTRAZENECA-2009UW15463

PATIENT
  Age: 880 Month
  Sex: Male
  Weight: 83.9 kg

DRUGS (8)
  1. CRESTOR [Suspect]
     Indication: BLOOD CHOLESTEROL INCREASED
     Route: 048
     Dates: start: 20090524, end: 20090801
  2. CRESTOR [Suspect]
     Route: 048
     Dates: start: 20090801
  3. PLAVIX [Concomitant]
  4. LASIX [Concomitant]
  5. ASPIRIN [Concomitant]
  6. INSPIRA [Concomitant]
  7. NITROGLYCERIN [Concomitant]
  8. COREG [Concomitant]

REACTIONS (6)
  - BLOOD CHOLESTEROL INCREASED [None]
  - BLOOD TRIGLYCERIDES INCREASED [None]
  - BLOOD URIC ACID INCREASED [None]
  - DRUG INEFFECTIVE [None]
  - INSOMNIA [None]
  - SLEEP DISORDER [None]
